FAERS Safety Report 24338156 (Version 1)
Quarter: 2024Q3

REPORT INFORMATION
  Report Type: Other
  Country: US (occurrence: US)
  Receive Date: 20240919
  Receipt Date: 20240919
  Transmission Date: 20241016
  Serious: Yes (Other)
  Sender: INTERCEPT PHARMACEUTICALS
  Company Number: US-INTERCEPT-PM2024001809

PATIENT
  Sex: Female

DRUGS (1)
  1. OCALIVA [Suspect]
     Active Substance: OBETICHOLIC ACID
     Indication: Primary biliary cholangitis
     Dosage: 10 MILLIGRAM, QD
     Route: 048
     Dates: start: 201707

REACTIONS (2)
  - Dementia [Not Recovered/Not Resolved]
  - Yellow skin [Not Recovered/Not Resolved]
